FAERS Safety Report 15482504 (Version 1)
Quarter: 2018Q4

REPORT INFORMATION
  Report Type: Spontaneous
  Country: US (occurrence: US)
  Receive Date: 20181010
  Receipt Date: 20181010
  Transmission Date: 20190205
  Serious: No
  Sender: FDA-Public Use
  Company Number: US-SA-2018SA275853

PATIENT
  Age: 69 Year
  Sex: Female
  Weight: 74.8 kg

DRUGS (16)
  1. FABRAZYME [Suspect]
     Active Substance: AGALSIDASE BETA
     Indication: FABRY^S DISEASE
     Dosage: 1.08 MG/KG
     Route: 041
  2. HYDROXYZINE [Concomitant]
     Active Substance: HYDROXYZINE HYDROCHLORIDE
     Dosage: 1 DF,4-6 HRS AS NEEDED
     Route: 048
     Dates: start: 20180319
  3. TRIAMCINOLONE ACETONIDE. [Concomitant]
     Active Substance: TRIAMCINOLONE ACETONIDE
     Dosage: 1 APP TOP BID
     Dates: start: 20180306
  4. VITAMIN D3 [Concomitant]
     Active Substance: CHOLECALCIFEROL
     Dosage: 1 DF, QW
     Route: 048
     Dates: start: 20161102
  5. MECLIZINE [MECLOZINE] [Concomitant]
     Dosage: 1 DF, PRN
     Route: 048
     Dates: start: 20150121
  6. OMEGA 3 [DOCOSAHEXAENOIC ACID;EICOSAPENTAENOIC ACID] [Concomitant]
     Dosage: 4CAPSULE
     Route: 048
     Dates: start: 20161102
  7. NORMAL SALINE [Concomitant]
     Active Substance: SODIUM CHLORIDE
     Dosage: 0.9 %
     Route: 042
     Dates: start: 20180320
  8. ULORIC [Concomitant]
     Active Substance: FEBUXOSTAT
     Dosage: 1 DF, QD
     Route: 048
     Dates: start: 20131002
  9. TRAMADOL. [Concomitant]
     Active Substance: TRAMADOL
     Dosage: 2 DF, PRN
     Route: 048
     Dates: start: 20170414
  10. STERILE WATER [Concomitant]
     Active Substance: WATER
     Dosage: 1 DOSE IV AS DIRECTED
     Route: 042
     Dates: start: 20180320
  11. ZOLPIDEM [Concomitant]
     Active Substance: ZOLPIDEM\ZOLPIDEM TARTRATE
     Dosage: 1 DF, QOW
     Route: 048
     Dates: start: 20170414
  12. SYNTHROID [Concomitant]
     Active Substance: LEVOTHYROXINE SODIUM
     Dosage: 1 DF, QOD
     Route: 048
     Dates: start: 20170414
  13. EPINEPHRINE. [Concomitant]
     Active Substance: EPINEPHRINE
     Indication: ANAPHYLACTIC REACTION
     Dosage: 0.3 MG, PRN
     Route: 030
     Dates: start: 20180320
  14. CLONAZEPAM. [Concomitant]
     Active Substance: CLONAZEPAM
     Dosage: 1 DF, PRN
     Route: 048
     Dates: start: 20150121
  15. SODIUM CHLORIDE. [Concomitant]
     Active Substance: SODIUM CHLORIDE
     Indication: FLUSHING
     Dosage: 0.9 % IV AS DIRECTED
     Route: 042
     Dates: start: 20180320
  16. DIOVAN [Concomitant]
     Active Substance: VALSARTAN
     Dosage: 1 DF, QD
     Route: 048
     Dates: start: 20131002

REACTIONS (1)
  - Dermatitis contact [Unknown]
